FAERS Safety Report 7866131-9 (Version None)
Quarter: 2011Q4

REPORT INFORMATION
  Report Type: 
  Country: None (occurrence: None)
  Receive Date: 20111028
  Receipt Date: 20110428
  Transmission Date: 20120403
  Serious: No
  Sender: FDA-Public Use
  Company Number: US-GLAXOSMITHKLINE-A0924924A

PATIENT
  Age: 68 Year
  Sex: Male

DRUGS (5)
  1. ZETIA [Concomitant]
  2. UNSPECIFIED MEDICATIONS [Concomitant]
  3. ADVAIR DISKUS 100/50 [Suspect]
     Indication: SEASONAL ALLERGY
     Dosage: 1PUFF TWICE PER DAY
     Route: 055
  4. METOPROLOL TARTRATE [Concomitant]
  5. CRESTOR [Concomitant]

REACTIONS (1)
  - GLOSSODYNIA [None]
